FAERS Safety Report 5768472-8 (Version None)
Quarter: 2008Q2

REPORT INFORMATION
  Report Type: 
  Country: None (occurrence: None)
  Receive Date: 20080610
  Receipt Date: 20080525
  Transmission Date: 20081010
  Serious: Yes (Hospitalization)
  Sender: FDA-Public Use
  Company Number: 1-16202404/MED-08109

PATIENT
  Age: 58 Year
  Sex: Male

DRUGS (5)
  1. QUALAQUIN [Suspect]
     Indication: MUSCLE SPASMS
     Dosage: 300 MG, ORAL
     Route: 048
  2. INSULIN [Concomitant]
  3. RAMIPRIL [Concomitant]
  4. AMLODIPINE [Concomitant]
  5. ASPIRIN [Concomitant]

REACTIONS (8)
  - CHILLS [None]
  - CHOLESTASIS [None]
  - DERMATITIS EXFOLIATIVE [None]
  - DRUG RASH WITH EOSINOPHILIA AND SYSTEMIC SYMPTOMS [None]
  - GRANULOMATOUS LIVER DISEASE [None]
  - HEPATITIS [None]
  - MYALGIA [None]
  - PYREXIA [None]
